FAERS Safety Report 17428683 (Version 1)
Quarter: 2020Q1

REPORT INFORMATION
  Report Type: Spontaneous
  Country: HR (occurrence: HR)
  Receive Date: 20200218
  Receipt Date: 20200218
  Transmission Date: 20200409
  Serious: Yes (Hospitalization)
  Sender: FDA-Public Use
  Company Number: HR-PFIZER INC-2020064159

PATIENT
  Age: 73 Year
  Sex: Female

DRUGS (5)
  1. PREDNISONE. [Suspect]
     Active Substance: PREDNISONE
     Indication: MARGINAL ZONE LYMPHOMA
     Dosage: UNK
     Route: 065
  2. ETOPOSIDE. [Suspect]
     Active Substance: ETOPOSIDE
     Indication: MARGINAL ZONE LYMPHOMA
     Dosage: UNK
     Route: 065
  3. GAZYVARO [Suspect]
     Active Substance: OBINUTUZUMAB
     Indication: MARGINAL ZONE LYMPHOMA
     Dosage: 1000 MG, UNK (1ST CYCLE DAYS 6AND 15, CYCLES 2-6 DAY1)
     Route: 042
  4. VINCRISTINE SULFATE. [Suspect]
     Active Substance: VINCRISTINE SULFATE
     Indication: MARGINAL ZONE LYMPHOMA
     Dosage: UNK
     Route: 065
  5. PHOSPHORIC ACID [Suspect]
     Active Substance: PHOSPHORIC ACID
     Indication: MARGINAL ZONE LYMPHOMA
     Dosage: UNK
     Route: 065

REACTIONS (1)
  - Febrile neutropenia [Recovered/Resolved]
